FAERS Safety Report 7580336-6 (Version None)
Quarter: 2011Q2

REPORT INFORMATION
  Report Type: 
  Country: None (occurrence: None)
  Receive Date: 20110629
  Receipt Date: 20110615
  Transmission Date: 20111010
  Serious: Yes (Hospitalization, Other)
  Sender: FDA-Public Use
  Company Number: DE-ROCHE-782451

PATIENT
  Sex: Female

DRUGS (2)
  1. INTERFERON BETA-1B [Suspect]
     Indication: PREMEDICATION
     Dosage: DOSE: 2 MIU, QOD
     Route: 065
     Dates: start: 20110519, end: 20110527
  2. NAPROXEN SODIUM [Suspect]
     Indication: PREMEDICATION
     Route: 065
     Dates: end: 20110527

REACTIONS (3)
  - ULCER HAEMORRHAGE [None]
  - VASCULAR RUPTURE [None]
  - HAEMORRHAGE [None]
